FAERS Safety Report 4455497-8 (Version None)
Quarter: 2004Q3

REPORT INFORMATION
  Report Type: 
  Country: None (occurrence: None)
  Receive Date: 20040917
  Receipt Date: 20040903
  Transmission Date: 20050211
  Serious: Yes (Congenital Anomaly)
  Sender: FDA-Public Use
  Company Number: 04P-163-0272475-00

PATIENT
  Sex: Female

DRUGS (1)
  1. DEPAKOTE [Suspect]
     Indication: DRUG EXPOSURE DURING PREGNANCY

REACTIONS (6)
  - CONGENITAL ANOMALY [None]
  - CONGENITAL MUSCULOSKELETAL ANOMALY [None]
  - DRUG EXPOSURE DURING PREGNANCY [None]
  - FACIAL DYSMORPHISM [None]
  - HIGH ARCHED PALATE [None]
  - PALATAL DISORDER [None]
